FAERS Safety Report 8149407-X (Version None)
Quarter: 2012Q1

REPORT INFORMATION
  Report Type: 
  Country: None (occurrence: None)
  Receive Date: 20120218
  Receipt Date: 20110927
  Transmission Date: 20120608
  Serious: No
  Sender: FDA-Public Use
  Company Number: US-ALLERGAN-1112757US

PATIENT
  Age: 72 Year
  Sex: Female

DRUGS (1)
  1. BOTULINUM TOXIN TYPE A [Suspect]
     Indication: SCIATICA
     Dosage: UNK
     Route: 030
     Dates: start: 20110916, end: 20110916

REACTIONS (5)
  - MALAISE [None]
  - PYREXIA [None]
  - COLD SWEAT [None]
  - HEADACHE [None]
  - DYSPHONIA [None]
